FAERS Safety Report 6427594-9 (Version None)
Quarter: 2009Q4

REPORT INFORMATION
  Report Type: 
  Country: None (occurrence: None)
  Receive Date: 20091104
  Receipt Date: 20091021
  Transmission Date: 20100525
  Serious: Yes (Other)
  Sender: FDA-Public Use
  Company Number: GB-PFIZER INC-2009276082

PATIENT
  Age: 74 Year
  Sex: Female

DRUGS (3)
  1. PHENYTOIN SODIUM CAP [Suspect]
     Dosage: UNK
     Route: 048
  2. PHENYTOIN SODIUM CAP [Suspect]
     Dosage: UNK
  3. PHENYTOIN SODIUM CAP [Suspect]
     Dosage: UNK

REACTIONS (3)
  - CEREBROVASCULAR ACCIDENT [None]
  - DYSPHAGIA [None]
  - EPILEPSY [None]
